FAERS Safety Report 12198207 (Version 1)
Quarter: 2016Q1

REPORT INFORMATION
  Report Type: Spontaneous
  Country: US (occurrence: None)
  Receive Date: 20160321
  Receipt Date: 20160321
  Transmission Date: 20160526
  Serious: Yes (Life-Threatening)
  Sender: FDA-Public Use
  Company Number: None

PATIENT
  Age: 47 Year
  Sex: Female
  Weight: 81.65 kg

DRUGS (4)
  1. NORETHINDRONE 5 MG BARR [Suspect]
     Active Substance: NORETHINDRONE
     Indication: MENORRHAGIA
     Dosage: 1 EVERY 4-6 HRS TAKEN BY MOUTH
     Route: 048
  2. FISH OIL [Concomitant]
     Active Substance: FISH OIL
  3. PROBIOTIC [Concomitant]
     Active Substance: PROBIOTICS NOS
  4. CALCIUM [Concomitant]
     Active Substance: CALCIUM

REACTIONS (2)
  - Suicidal ideation [None]
  - Crying [None]

NARRATIVE: CASE EVENT DATE: 20151216
